FAERS Safety Report 13414328 (Version 2)
Quarter: 2017Q4

REPORT INFORMATION
  Report Type: Spontaneous
  Country: JP (occurrence: JP)
  Receive Date: 20170407
  Receipt Date: 20171127
  Transmission Date: 20180320
  Serious: Yes (Hospitalization)
  Sender: FDA-Public Use
  Company Number: JP-ASTRAZENECA-2017SE36323

PATIENT
  Age: 782 Month
  Sex: Male
  Weight: 57 kg

DRUGS (2)
  1. ONGLYZA [Suspect]
     Active Substance: SAXAGLIPTIN HYDROCHLORIDE
     Indication: DIABETES MELLITUS
     Route: 048
     Dates: start: 201501, end: 20160527
  2. AIMIX [Concomitant]
     Active Substance: AMLODIPINE BESYLATE\IRBESARTAN
     Route: 048
     Dates: start: 201501

REACTIONS (1)
  - Seronegative arthritis [Recovered/Resolved]

NARRATIVE: CASE EVENT DATE: 201602
